FAERS Safety Report 11858031 (Version 1)
Quarter: 2015Q4

REPORT INFORMATION
  Report Type: Spontaneous
  Country: US (occurrence: US)
  Receive Date: 20151222
  Receipt Date: 20151222
  Transmission Date: 20160305
  Serious: No
  Sender: FDA-Public Use
  Company Number: US-TEVA-529339USA

PATIENT
  Age: 71 Year
  Sex: Female

DRUGS (3)
  1. CLONAZEPAM. [Concomitant]
     Active Substance: CLONAZEPAM
  2. CLONIDINE. [Concomitant]
     Active Substance: CLONIDINE
  3. TRAZODONE [Suspect]
     Active Substance: TRAZODONE HYDROCHLORIDE
     Indication: INSOMNIA
     Route: 048
     Dates: start: 20141108, end: 201411

REACTIONS (9)
  - Trigger finger [Unknown]
  - Arthralgia [Not Recovered/Not Resolved]
  - Osteoporosis [Not Recovered/Not Resolved]
  - Pain in extremity [Not Recovered/Not Resolved]
  - Peripheral swelling [Unknown]
  - Ligament pain [Not Recovered/Not Resolved]
  - Paraesthesia [Unknown]
  - Arthropathy [Unknown]
  - Burning sensation [Unknown]

NARRATIVE: CASE EVENT DATE: 2014
